FAERS Safety Report 25948931 (Version 3)
Quarter: 2025Q4

REPORT INFORMATION
  Report Type: Report from Study
  Country: CA (occurrence: CA)
  Receive Date: 20251022
  Receipt Date: 20251231
  Transmission Date: 20260117
  Serious: Yes (Other)
  Sender: PFIZER
  Company Number: CA-PFIZER INC-202500206193

PATIENT
  Age: 54 Year
  Sex: Male
  Weight: 90 kg

DRUGS (4)
  1. IXIFI [Suspect]
     Active Substance: INFLIXIMAB-QBTX
     Indication: Crohn^s disease
     Dosage: 400 MG, AT WEEK 0,2,6 AND THEN EVERY 8 WEEKS
     Route: 042
     Dates: start: 20250904
  2. IXIFI [Suspect]
     Active Substance: INFLIXIMAB-QBTX
     Dosage: 400 MG, AT WEEK 0,2,6 AND THEN EVERY 8 WEEKS
     Route: 042
     Dates: start: 20250919
  3. IXIFI [Suspect]
     Active Substance: INFLIXIMAB-QBTX
     Dosage: 400 MG, AFTER 3 WEEKS AND 6 DAYS
     Route: 042
     Dates: start: 20251016
  4. IXIFI [Suspect]
     Active Substance: INFLIXIMAB-QBTX
     Dosage: 400 MG, EVERY 8 WEEKS
     Route: 042
     Dates: start: 20251211

REACTIONS (8)
  - Amnesia [Unknown]
  - Brain fog [Recovering/Resolving]
  - Anal fissure [Recovered/Resolved]
  - Condition aggravated [Not Recovered/Not Resolved]
  - Arthralgia [Recovering/Resolving]
  - Haemorrhoidal haemorrhage [Recovering/Resolving]
  - Faeces hard [Recovering/Resolving]
  - Off label use [Unknown]

NARRATIVE: CASE EVENT DATE: 20250101
